FAERS Safety Report 7902675-9 (Version None)
Quarter: 2011Q4

REPORT INFORMATION
  Report Type: 
  Country: None (occurrence: None)
  Receive Date: 20111108
  Receipt Date: 20111031
  Transmission Date: 20120403
  Serious: Yes (Other)
  Sender: FDA-Public Use
  Company Number: US-MERCK-0112USA01806

PATIENT
  Age: 66 Year
  Sex: Female

DRUGS (7)
  1. FOSAMAX [Suspect]
     Indication: OSTEOPOROSIS
     Route: 048
     Dates: start: 20011001
  2. INSULIN [Concomitant]
     Route: 065
  3. MONOPRIL [Concomitant]
     Route: 065
  4. FOSAMAX [Suspect]
     Indication: HIP FRACTURE
     Route: 048
     Dates: start: 20011001
  5. HYDROCHLOROTHIAZIDE [Concomitant]
     Route: 065
  6. PRAVACHOL [Concomitant]
     Route: 065
  7. ACTONEL [Suspect]
     Route: 065

REACTIONS (6)
  - VOMITING [None]
  - ARTHROPATHY [None]
  - NAUSEA [None]
  - DYSPEPSIA [None]
  - ADVERSE EVENT [None]
  - BONE DISORDER [None]
